FAERS Safety Report 6315350-1 (Version None)
Quarter: 2009Q3

REPORT INFORMATION
  Report Type: 
  Country: None (occurrence: None)
  Receive Date: 20090819
  Receipt Date: 20090813
  Transmission Date: 20100115
  Serious: Yes (Hospitalization)
  Sender: FDA-Public Use
  Company Number: US-GENENTECH-288325

PATIENT
  Sex: Female

DRUGS (2)
  1. BEVACIZUMAB [Suspect]
     Indication: NEUROBLASTOMA
     Dosage: UNK
     Dates: start: 20090620
  2. I-131 3F8 [Suspect]
     Indication: NEUROBLASTOMA
     Dosage: UNK
     Dates: start: 20090619

REACTIONS (1)
  - INFECTION [None]
